FAERS Safety Report 8842484 (Version 1)
Quarter: 2012Q4

REPORT INFORMATION
  Report Type: Spontaneous
  Country: US (occurrence: None)
  Receive Date: 20121015
  Receipt Date: 20121015
  Transmission Date: 20130627
  Serious: Yes (Hospitalization, Disabling, Other)
  Sender: FDA-Public Use
  Company Number: None

PATIENT
  Age: 27 Year
  Sex: Female
  Weight: 56.25 kg

DRUGS (1)
  1. MIRENA [Suspect]
     Indication: MULTIPAROUS
     Dates: start: 20090501, end: 20090701

REACTIONS (4)
  - Pain [None]
  - Uterine perforation [None]
  - Haemorrhage [None]
  - Device dislocation [None]
